FAERS Safety Report 20758288 (Version 1)
Quarter: 2022Q2

REPORT INFORMATION
  Report Type: Spontaneous
  Country: GB (occurrence: GB)
  Receive Date: 20220427
  Receipt Date: 20220427
  Transmission Date: 20220720
  Serious: Yes (Other)
  Sender: FDA-Public Use
  Company Number: GB-GLAXOSMITHKLINE-GB2022GSK070110

PATIENT
  Sex: Female

DRUGS (3)
  1. EPOPROSTENOL [Suspect]
     Active Substance: EPOPROSTENOL
     Indication: Syncope
     Dosage: UNK
     Route: 042
  2. SILDENAFIL [Concomitant]
     Active Substance: SILDENAFIL
     Indication: Syncope
     Dosage: UNK
  3. MACITENTAN [Concomitant]
     Active Substance: MACITENTAN
     Indication: Syncope
     Dosage: UNK

REACTIONS (1)
  - Vascular device infection [Unknown]
